FAERS Safety Report 5068974-6 (Version None)
Quarter: 2006Q3

REPORT INFORMATION
  Report Type: 
  Country: None (occurrence: None)
  Receive Date: 20060801
  Receipt Date: 20060801
  Transmission Date: 20061208
  Serious: Yes (Hospitalization)
  Sender: FDA-Public Use
  Company Number: None

PATIENT
  Sex: Male
  Weight: 120.2 kg

DRUGS (2)
  1. CYTARABINE [Suspect]
     Dosage: CYCLE 6 - REMISSION CONSOLIDATION THERAPY II; CYTARABINE 2G/M2 IV OVER 2 HOURS X 8 DOSES ON DAYS
     Route: 042
  2. ETOPOSIDE [Suspect]

REACTIONS (3)
  - CENTRAL LINE INFECTION [None]
  - NEUTROPHIL COUNT DECREASED [None]
  - WHITE BLOOD CELL COUNT DECREASED [None]
